FAERS Safety Report 8274149-X (Version None)
Quarter: 2012Q2

REPORT INFORMATION
  Report Type: 
  Country: None (occurrence: None)
  Receive Date: 20120406
  Receipt Date: 20120406
  Transmission Date: 20120825
  Serious: Yes (Other)
  Sender: FDA-Public Use
  Company Number: None

PATIENT
  Age: 37 Year
  Sex: Male
  Weight: 86.1834 kg

DRUGS (1)
  1. HYDROGEN PEROXIDE SOLUTION [Suspect]
     Indication: DENTAL DISORDER PROPHYLAXIS
     Dosage: 1 IN 1 DAY, ORAL
     Route: 048
     Dates: start: 20120201, end: 20120201

REACTIONS (2)
  - TOOTH DISORDER [None]
  - SENSITIVITY OF TEETH [None]
